FAERS Safety Report 8575979-7 (Version None)
Quarter: 2012Q3

REPORT INFORMATION
  Report Type: 
  Country: None (occurrence: None)
  Receive Date: 20120807
  Receipt Date: 20120730
  Transmission Date: 20120928
  Serious: No
  Sender: FDA-Public Use
  Company Number: US-B.I. PHARMACEUTICALS,INC./RIDGEFIELD-2012-BP-17185BP

PATIENT
  Sex: Female

DRUGS (4)
  1. OMEPRAZOLE [Concomitant]
     Indication: DYSPEPSIA
     Dosage: 20 MG
     Route: 048
  2. CELEBREX [Concomitant]
     Indication: OSTEOPOROSIS
     Dosage: 200 MG
     Route: 048
  3. PRADAXA [Suspect]
     Indication: ATRIAL FIBRILLATION
     Dosage: 300 MG
     Route: 048
     Dates: start: 20120710, end: 20120716
  4. POTASSIUM CITRATE [Concomitant]
     Indication: SUPPLEMENTATION THERAPY

REACTIONS (1)
  - APHONIA [None]
